FAERS Safety Report 12289993 (Version 1)
Quarter: 2016Q2

REPORT INFORMATION
  Report Type: Spontaneous
  Country: FR (occurrence: FR)
  Receive Date: 20160421
  Receipt Date: 20160421
  Transmission Date: 20160815
  Serious: Yes (Other)
  Sender: FDA-Public Use
  Company Number: FR-GLAXOSMITHKLINE-FR2016GSK054304

PATIENT
  Sex: Male

DRUGS (1)
  1. VOLTAREN [Suspect]
     Active Substance: DICLOFENAC SODIUM
     Indication: SCIATICA
     Dosage: UNK, 2% INTENSE, QD
     Route: 061
     Dates: start: 2016, end: 2016

REACTIONS (2)
  - Product use issue [Unknown]
  - Chloropsia [Recovered/Resolved]

NARRATIVE: CASE EVENT DATE: 2016
